FAERS Safety Report 14008842 (Version 2)
Quarter: 2017Q4

REPORT INFORMATION
  Report Type: Spontaneous
  Country: US (occurrence: US)
  Receive Date: 20170925
  Receipt Date: 20171106
  Transmission Date: 20180321
  Serious: Yes (Other)
  Sender: FDA-Public Use
  Company Number: US-PFIZER INC-2017406810

PATIENT
  Age: 73 Year
  Sex: Female
  Weight: 79.38 kg

DRUGS (1)
  1. NICOTROL [Suspect]
     Active Substance: NICOTINE
     Dosage: UNK
     Dates: start: 2012

REACTIONS (2)
  - Product quality issue [Unknown]
  - Burn oral cavity [Unknown]

NARRATIVE: CASE EVENT DATE: 2012
